FAERS Safety Report 19063986 (Version 1)
Quarter: 2021Q1

REPORT INFORMATION
  Report Type: Report from Study
  Country: IT (occurrence: IT)
  Receive Date: 20210326
  Receipt Date: 20210326
  Transmission Date: 20210420
  Serious: Yes (Other)
  Sender: FDA-Public Use
  Company Number: IT-TEVA-2021-IT-1893403

PATIENT
  Age: 56 Year
  Sex: Female

DRUGS (4)
  1. HALOPERIDOL. [Concomitant]
     Active Substance: HALOPERIDOL
  2. SODIUM VALPROATE [Concomitant]
     Active Substance: VALPROATE SODIUM
  3. LITHIUM. [Concomitant]
     Active Substance: LITHIUM
  4. CLOZAPINE. [Suspect]
     Active Substance: CLOZAPINE
     Route: 065

REACTIONS (3)
  - Anuria [Unknown]
  - Confusional state [Unknown]
  - Gait disturbance [Unknown]

NARRATIVE: CASE EVENT DATE: 20210223
